FAERS Safety Report 10711790 (Version 9)
Quarter: 2019Q4

REPORT INFORMATION
  Report Type: Spontaneous
  Country: US (occurrence: US)
  Receive Date: 20150114
  Receipt Date: 20191007
  Transmission Date: 20200122
  Serious: Yes (Disabling, Other)
  Sender: FDA-Public Use
  Company Number: US-009507513-1011USA02589

PATIENT
  Sex: Male
  Weight: 70.3 kg

DRUGS (3)
  1. FINASTERIDE. [Suspect]
     Active Substance: FINASTERIDE
     Indication: ANDROGENETIC ALOPECIA
     Dosage: 5 MG, QD
     Route: 048
     Dates: start: 20090918, end: 201003
  2. PROPECIA [Suspect]
     Active Substance: FINASTERIDE
     Dosage: 1 MG, QD
     Route: 048
     Dates: start: 20090901, end: 20100320
  3. PROPECIA [Suspect]
     Active Substance: FINASTERIDE
     Indication: ANDROGENETIC ALOPECIA
     Dosage: 1 MG, QD
     Route: 048
     Dates: start: 20080401, end: 200805

REACTIONS (59)
  - Suicidal ideation [Recovered/Resolved]
  - Tachyphrenia [Recovered/Resolved]
  - Deformity [Unknown]
  - Social avoidant behaviour [Unknown]
  - Hypogonadism [Not Recovered/Not Resolved]
  - Bipolar disorder [Not Recovered/Not Resolved]
  - Hypomania [Recovered/Resolved]
  - Staphylococcal infection [Unknown]
  - Vitamin D deficiency [Unknown]
  - Folliculitis [Unknown]
  - Cognitive disorder [Recovered/Resolved]
  - Neuropathy peripheral [Unknown]
  - Obsessive-compulsive personality disorder [Unknown]
  - Gastrooesophageal reflux disease [Unknown]
  - Hypomania [Recovered/Resolved]
  - Tachyphrenia [Unknown]
  - Lyme disease [Unknown]
  - Libido decreased [Not Recovered/Not Resolved]
  - Post 5-alpha-reductase inhibitor syndrome [Not Recovered/Not Resolved]
  - Muscle atrophy [Unknown]
  - Adverse event [Unknown]
  - Irritable bowel syndrome [Unknown]
  - Dysphagia [Unknown]
  - Endocrine disorder [Unknown]
  - Hormone level abnormal [Unknown]
  - Sexual dysfunction [Unknown]
  - Ejaculation failure [Unknown]
  - Delusional disorder, unspecified type [Recovered/Resolved]
  - Immunology test abnormal [Recovered/Resolved]
  - Adjustment disorder with depressed mood [Unknown]
  - Insomnia [Recovered/Resolved]
  - Blood follicle stimulating hormone decreased [Not Recovered/Not Resolved]
  - Muscular weakness [Unknown]
  - Orgasm abnormal [Unknown]
  - Gynaecomastia [Unknown]
  - Nightmare [Unknown]
  - Fatigue [Not Recovered/Not Resolved]
  - Seizure [Unknown]
  - Cognitive disorder [Recovered/Resolved]
  - Anxiety [Recovered/Resolved]
  - Adjustment disorder with depressed mood [Recovered/Resolved]
  - Hypomania [Recovered/Resolved]
  - Rapid eye movements sleep abnormal [Unknown]
  - Peripheral sensorimotor neuropathy [Unknown]
  - Sleep apnoea syndrome [Unknown]
  - Tinea infection [Unknown]
  - Erectile dysfunction [Not Recovered/Not Resolved]
  - Vitamin B12 deficiency [Unknown]
  - Ejaculation disorder [Unknown]
  - Post inflammatory pigmentation change [Unknown]
  - Generalised anxiety disorder [Recovering/Resolving]
  - Androgen insensitivity syndrome [Unknown]
  - Adjustment disorder with depressed mood [Not Recovered/Not Resolved]
  - Erectile dysfunction [Recovered/Resolved]
  - Dihydrotestosterone decreased [Unknown]
  - Genital hypoaesthesia [Unknown]
  - Immune system disorder [Unknown]
  - Paraesthesia [Unknown]
  - Acne [Unknown]

NARRATIVE: CASE EVENT DATE: 200804
